FAERS Safety Report 7304854-0 (Version None)
Quarter: 2011Q1

REPORT INFORMATION
  Report Type: 
  Country: None (occurrence: None)
  Receive Date: 20110222
  Receipt Date: 20110214
  Transmission Date: 20110831
  Serious: Yes (Hospitalization)
  Sender: FDA-Public Use
  Company Number: GB-US-EMD SERONO, INC.-7029815

PATIENT
  Sex: Female

DRUGS (3)
  1. SAIZEN [Suspect]
     Dates: start: 20101119, end: 20100101
  2. SAIZEN [Suspect]
     Indication: PRODUCT USED FOR UNKNOWN INDICATION
     Dates: start: 20100412, end: 20100101
  3. SAIZEN [Suspect]
     Dates: start: 20101231, end: 20110211

REACTIONS (4)
  - HYPOAESTHESIA [None]
  - BALANCE DISORDER [None]
  - BRAIN MASS [None]
  - DRUG EXPOSURE DURING PREGNANCY [None]
